FAERS Safety Report 11031386 (Version 1)
Quarter: 2015Q2

REPORT INFORMATION
  Report Type: Spontaneous
  Country: US (occurrence: US)
  Receive Date: 20150415
  Receipt Date: 20150415
  Transmission Date: 20150821
  Serious: No
  Sender: FDA-Public Use
  Company Number: US-PFIZER INC-2015126587

PATIENT
  Age: 64 Year
  Sex: Female
  Weight: 85 kg

DRUGS (4)
  1. CAMPTOSAR [Suspect]
     Active Substance: IRINOTECAN HYDROCHLORIDE
     Indication: COLON CANCER
     Dosage: 400 MG, IN DEXTROSE 5% 500 ML SOLUTION, EVERY 3 WEEKS
     Route: 042
     Dates: start: 20150120, end: 20150120
  2. CAMPTOSAR [Suspect]
     Active Substance: IRINOTECAN HYDROCHLORIDE
     Dosage: 420 MG, UNK
     Route: 042
     Dates: start: 20150302, end: 20150302
  3. CAMPTOSAR [Suspect]
     Active Substance: IRINOTECAN HYDROCHLORIDE
     Dosage: 420 MG, UNK
     Route: 042
     Dates: start: 20150323, end: 20150323
  4. CAMPTOSAR [Suspect]
     Active Substance: IRINOTECAN HYDROCHLORIDE
     Dosage: 420 MG, UNK
     Route: 042
     Dates: start: 20150209, end: 20150209

REACTIONS (1)
  - Diarrhoea [Unknown]
